FAERS Safety Report 9098561 (Version 1)
Quarter: 2013Q1

REPORT INFORMATION
  Report Type: Spontaneous
  Country: MX (occurrence: MX)
  Receive Date: 20130213
  Receipt Date: 20130213
  Transmission Date: 20140127
  Serious: Yes (Hospitalization)
  Sender: FDA-Public Use
  Company Number: MX-JNJFOC-20121200702

PATIENT
  Age: 31 Year
  Sex: Female

DRUGS (1)
  1. LEVOFLOXACIN [Suspect]
     Indication: PROPHYLAXIS
     Route: 042
     Dates: start: 20120610, end: 20120611

REACTIONS (4)
  - Hospitalisation [Unknown]
  - Rash [Unknown]
  - Product counterfeit [Unknown]
  - Product counterfeit [None]
